FAERS Safety Report 9012092 (Version 1)
Quarter: 2012Q4

REPORT INFORMATION
  Report Type: Spontaneous
  Country: CA (occurrence: None)
  Receive Date: 20121228
  Receipt Date: 20121228
  Transmission Date: 20130627
  Serious: Yes (Hospitalization)
  Sender: FDA-Public Use
  Company Number: 2012AP004360

PATIENT
  Age: 17 Month
  Sex: Female

DRUGS (1)
  1. OLANZAPINE (OLANZAPINE) [Suspect]

REACTIONS (5)
  - Respiratory distress [None]
  - Pyrexia [None]
  - Extrapyramidal disorder [None]
  - Accidental overdose [None]
  - Accidental exposure to product by child [None]
